FAERS Safety Report 18099746 (Version 3)
Quarter: 2020Q3

REPORT INFORMATION
  Report Type: Spontaneous
  Country: US (occurrence: US)
  Receive Date: 20200731
  Receipt Date: 20200909
  Transmission Date: 20201103
  Serious: Yes (Hospitalization, Other)
  Sender: FDA-Public Use
  Company Number: US-009507513-2007USA011108

PATIENT
  Sex: Male
  Weight: 77.1 kg

DRUGS (12)
  1. AZITHROMYCIN ANHYDROUS. [Concomitant]
     Active Substance: AZITHROMYCIN ANHYDROUS
     Indication: INFECTION
     Dosage: UNK
     Dates: start: 20101015, end: 20170821
  2. TAMSULOSIN HYDROCHLORIDE. [Concomitant]
     Active Substance: TAMSULOSIN HYDROCHLORIDE
     Indication: PROSTATOMEGALY
     Dosage: UNK
     Dates: start: 20100908, end: 20200501
  3. COZAAR [Concomitant]
     Active Substance: LOSARTAN POTASSIUM
     Indication: HYPERTENSION
     Dosage: 50MG
     Dates: start: 20141211, end: 20200615
  4. METFORMIN [Concomitant]
     Active Substance: METFORMIN HYDROCHLORIDE
     Indication: TYPE 2 DIABETES MELLITUS
     Dosage: UNK
     Dates: start: 20141222, end: 20200528
  5. VALACYCLOVIR HYDROCHLORIDE. [Concomitant]
     Active Substance: VALACYCLOVIR HYDROCHLORIDE
     Indication: INFECTION
     Dosage: UNK
     Dates: start: 20131213, end: 20200609
  6. DORIBAX [Concomitant]
     Active Substance: DORIPENEM
     Indication: INFECTION
     Dosage: UNK
     Dates: start: 20160108, end: 20160126
  7. POLYETHYLENE GLYCOL 3350. [Concomitant]
     Active Substance: POLYETHYLENE GLYCOL 3350
     Indication: LAXATIVE SUPPORTIVE CARE
     Dosage: UNK
     Dates: start: 20131204, end: 20170331
  8. LANTUS [Concomitant]
     Active Substance: INSULIN GLARGINE
     Indication: TYPE 2 DIABETES MELLITUS
     Dosage: 10 UNIT, BID; STRNGTH: 100 UNITS
     Dates: start: 20151213, end: 20170811
  9. HUMALOG [Concomitant]
     Active Substance: INSULIN LISPRO
     Indication: TYPE 2 DIABETES MELLITUS
     Dosage: STRENGTH: 100 UNITS
     Dates: start: 20151229, end: 20181115
  10. JANUVIA [Suspect]
     Active Substance: SITAGLIPTIN PHOSPHATE
     Indication: TYPE 2 DIABETES MELLITUS
     Dosage: 50 MILLIGRAM, DAILY
     Route: 048
     Dates: start: 20150316, end: 20150624
  11. GABAPENTIN. [Concomitant]
     Active Substance: GABAPENTIN
     Indication: PAIN MANAGEMENT
     Dosage: UNK
     Dates: start: 20100205, end: 20170617
  12. CUBICIN [Concomitant]
     Active Substance: DAPTOMYCIN
     Indication: INFECTION
     Dosage: UNK
     Dates: start: 20160108, end: 20160204

REACTIONS (18)
  - Obstructive pancreatitis [Recovered/Resolved]
  - Ocular hypertension [Unknown]
  - Sepsis [Unknown]
  - Nausea [Unknown]
  - Plastic surgery [Unknown]
  - Abdominal discomfort [Unknown]
  - Inflammation [Unknown]
  - Bacteraemia [Unknown]
  - Somnolence [Unknown]
  - Intraductal papillary mucinous neoplasm [Unknown]
  - Gastrooesophageal reflux disease [Unknown]
  - Ulcer [Unknown]
  - Dry mouth [Unknown]
  - Pancreatic carcinoma metastatic [Unknown]
  - Vomiting [Unknown]
  - Procedural pain [Unknown]
  - Hernia repair [Unknown]
  - Hernia [Unknown]

NARRATIVE: CASE EVENT DATE: 2015
